FAERS Safety Report 11486827 (Version 1)
Quarter: 2015Q3

REPORT INFORMATION
  Report Type: Spontaneous
  Country: US (occurrence: US)
  Receive Date: 20150910
  Receipt Date: 20150910
  Transmission Date: 20151125
  Serious: No
  Sender: FDA-Public Use
  Company Number: US-PFIZER INC-2015295474

PATIENT
  Age: 74 Year
  Sex: Female
  Weight: 49 kg

DRUGS (14)
  1. PREMARIN [Suspect]
     Active Substance: ESTROGENS, CONJUGATED
     Indication: OESTROGEN REPLACEMENT THERAPY
     Dosage: ONE APPLICATOR ONCE OR TWICE A WEEK
     Dates: start: 2014
  2. AMLODIPINE [Concomitant]
     Active Substance: AMLODIPINE BESYLATE
     Indication: HYPERTENSION
     Dosage: 5 MG, DAILY
     Route: 048
  3. BABY ASPIRIN [Concomitant]
     Active Substance: ASPIRIN
     Indication: CARDIOVASCULAR EVENT PROPHYLAXIS
     Dosage: 81 MG, DAILY
     Route: 048
  4. VITAMIN D3 [Concomitant]
     Active Substance: CHOLECALCIFEROL
     Indication: IMMUNE SYSTEM DISORDER
  5. ATENOLOL. [Concomitant]
     Active Substance: ATENOLOL
     Indication: HYPERTENSION
     Dosage: 12.5 MG, 2X/DAY
     Route: 048
  6. AMLODIPINE [Concomitant]
     Active Substance: AMLODIPINE BESYLATE
     Dosage: 5 MG, DAILY
     Route: 048
  7. VITAMIN C [Concomitant]
     Active Substance: ASCORBIC ACID
     Indication: PROPHYLAXIS
     Dosage: 500, DAILY
     Route: 048
  8. VITAMIN E [Concomitant]
     Active Substance: .ALPHA.-TOCOPHEROL
     Indication: CARDIOVASCULAR EVENT PROPHYLAXIS
  9. AMLODIPINE [Concomitant]
     Active Substance: AMLODIPINE BESYLATE
     Dosage: 7 MG, DAILY
     Route: 048
  10. VITAMIN E [Concomitant]
     Active Substance: .ALPHA.-TOCOPHEROL
     Indication: HOT FLUSH
     Dosage: 400 IU, DAILY
     Route: 048
  11. VITAMIN D3 [Concomitant]
     Active Substance: CHOLECALCIFEROL
     Indication: VITAMIN D DECREASED
     Dosage: 2000 IU AND 1000 IU, TAKES ONE EACH FOR A TOTAL OF 3000 IU, DAILY
     Route: 048
  12. SIMVASTATIN. [Concomitant]
     Active Substance: SIMVASTATIN
     Indication: BLOOD CHOLESTEROL ABNORMAL
     Dosage: 5 MG, DAILY
     Route: 048
  13. PREMARIN [Suspect]
     Active Substance: ESTROGENS, CONJUGATED
     Dosage: 1/2 APPLICATOR ONCE A WEEK
     Dates: end: 201506
  14. CINNAMON. [Concomitant]
     Active Substance: CINNAMON
     Indication: BLOOD GLUCOSE INCREASED
     Dosage: 1 DF, DAILY
     Route: 048

REACTIONS (2)
  - Contraindicated drug administered [Recovered/Resolved]
  - Breast pain [Recovered/Resolved]

NARRATIVE: CASE EVENT DATE: 2014
